FAERS Safety Report 6011326-2 (Version None)
Quarter: 2008Q4

REPORT INFORMATION
  Report Type: 
  Country: None (occurrence: None)
  Receive Date: 20081218
  Receipt Date: 20081210
  Transmission Date: 20090506
  Serious: Yes (Hospitalization, Other)
  Sender: FDA-Public Use
  Company Number: US-BIOGENIDEC-2008BI033598

PATIENT
  Age: 74 Year
  Sex: Female

DRUGS (2)
  1. AVONEX [Suspect]
     Indication: MULTIPLE SCLEROSIS
     Route: 030
     Dates: start: 20010326, end: 20070823
  2. AVONEX [Suspect]
     Route: 030
     Dates: start: 20080522

REACTIONS (2)
  - MULTIPLE SCLEROSIS RELAPSE [None]
  - SKIN CANCER [None]
